FAERS Safety Report 10234719 (Version 1)
Quarter: 2014Q2

REPORT INFORMATION
  Report Type: Spontaneous
  Country: US (occurrence: None)
  Receive Date: 20140611
  Receipt Date: 20140611
  Transmission Date: 20141212
  Serious: Yes (Other)
  Sender: FDA-Public Use
  Company Number: None

PATIENT
  Sex: Female

DRUGS (1)
  1. ATROVASTATIN [Suspect]
     Indication: HYPERLIPIDAEMIA
     Dosage: 1/4 TAB PO DAILY.

REACTIONS (4)
  - Myalgia [None]
  - Asthenia [None]
  - Muscular weakness [None]
  - Product substitution issue [None]
